FAERS Safety Report 20041647 (Version 3)
Quarter: 2023Q4

REPORT INFORMATION
  Report Type: Report from Study
  Country: JP (occurrence: JP)
  Receive Date: 20211108
  Receipt Date: 20231120
  Transmission Date: 20240109
  Serious: Yes (Life-Threatening, Hospitalization, Other)
  Sender: FDA-Public Use
  Company Number: JP-SA-2021SA364771

PATIENT
  Age: 63 Year
  Sex: Female
  Weight: 40.2 kg

DRUGS (13)
  1. ALEMTUZUMAB [Suspect]
     Active Substance: ALEMTUZUMAB
     Indication: Premedication
     Dosage: 0.16 MG/KG
     Route: 041
     Dates: start: 20210605, end: 20210607
  2. FLUDARA [Suspect]
     Active Substance: FLUDARABINE PHOSPHATE
     Indication: Premedication
     Dosage: 33 MG, QD
     Route: 041
     Dates: start: 20210603, end: 20210607
  3. ALKERAN [Suspect]
     Active Substance: MELPHALAN
     Indication: Premedication
     Dosage: 54 MG, QD
     Route: 042
     Dates: start: 20210606, end: 20210607
  4. CALONAL [Concomitant]
     Active Substance: ACETAMINOPHEN
     Indication: Prophylaxis
     Dosage: 400 MG, QD
     Route: 048
     Dates: start: 20210605, end: 20210607
  5. CALONAL [Concomitant]
     Active Substance: ACETAMINOPHEN
     Indication: Pyrexia
     Dosage: 400 MG
     Route: 048
  6. POLARAMINE [Concomitant]
     Active Substance: DEXCHLORPHENIRAMINE MALEATE
     Indication: Prophylaxis
     Dosage: 5 MG, QD
     Route: 042
     Dates: start: 20210605, end: 20210607
  7. SOLU-MEDROL [Concomitant]
     Active Substance: METHYLPREDNISOLONE SODIUM SUCCINATE
     Indication: Prophylaxis
     Dosage: 40 MG, QD
     Route: 042
     Dates: start: 20210605, end: 20210607
  8. MICAFUNGIN SODIUM [Concomitant]
     Active Substance: MICAFUNGIN SODIUM
     Indication: Infection prophylaxis
     Dosage: 50 MG, QD
     Route: 042
     Dates: start: 20210518, end: 20210630
  9. MICAFUNGIN SODIUM [Concomitant]
     Active Substance: MICAFUNGIN SODIUM
     Indication: Bronchopulmonary aspergillosis
     Dosage: 300 MG, QD
     Route: 042
     Dates: start: 20210701, end: 20210703
  10. MICAFUNGIN SODIUM [Concomitant]
     Active Substance: MICAFUNGIN SODIUM
     Dosage: 300 MG, QD
     Route: 042
     Dates: start: 20210707, end: 20210831
  11. VALACYCLOVIR HYDROCHLORIDE [Concomitant]
     Active Substance: VALACYCLOVIR HYDROCHLORIDE
     Indication: Infection prophylaxis
     Dosage: 500 MG, QD
     Route: 048
     Dates: start: 20210603
  12. PREVYMIS [Concomitant]
     Active Substance: LETERMOVIR
     Indication: Infection prophylaxis
     Dosage: 240 MG, QD
     Route: 048
     Dates: start: 20210611, end: 20210921
  13. CEFEPIME HYDROCHLORIDE [Concomitant]
     Active Substance: CEFEPIME HYDROCHLORIDE
     Indication: Infection prophylaxis
     Dosage: 2 G, BID
     Route: 042
     Dates: start: 20210508, end: 20210605

REACTIONS (6)
  - Bronchopulmonary aspergillosis [Recovered/Resolved]
  - Cardiac failure acute [Recovered/Resolved]
  - Venoocclusive liver disease [Recovered/Resolved]
  - Stenotrophomonas bacteraemia [Recovered/Resolved]
  - Sepsis [Recovered/Resolved]
  - Pyrexia [Recovered/Resolved]

NARRATIVE: CASE EVENT DATE: 20210605
